FAERS Safety Report 23880748 (Version 1)
Quarter: 2024Q2

REPORT INFORMATION
  Report Type: Spontaneous
  Country: RO (occurrence: RO)
  Receive Date: 20240521
  Receipt Date: 20240521
  Transmission Date: 20240715
  Serious: Yes (Death, Hospitalization, Other)
  Sender: FDA-Public Use
  Company Number: RO-SA-2024SA151985

PATIENT
  Age: 54 Year
  Sex: Female

DRUGS (4)
  1. LEFLUNOMIDE [Suspect]
     Active Substance: LEFLUNOMIDE
     Indication: Rheumatoid arthritis
     Dosage: UNK
     Dates: end: 2022
  2. METHOTREXATE [Suspect]
     Active Substance: METHOTREXATE
     Indication: Rheumatoid arthritis
     Dosage: UNK
  3. ADALIMUMAB [Suspect]
     Active Substance: ADALIMUMAB\ISOPROPYL ALCOHOL
     Indication: Rheumatoid arthritis
     Dosage: UNK
     Dates: end: 2022
  4. CORTICOSTEROID NOS [Suspect]
     Active Substance: CORTICOSTEROID NOS
     Indication: Rheumatoid arthritis

REACTIONS (18)
  - Cardio-respiratory arrest [Fatal]
  - Disseminated tuberculosis [Fatal]
  - Pleural effusion [Fatal]
  - Dyspnoea exertional [Fatal]
  - Cough [Fatal]
  - Decreased appetite [Fatal]
  - Fatigue [Fatal]
  - Septic shock [Fatal]
  - Endocarditis [Fatal]
  - Pyrexia [Fatal]
  - Hypertension [Fatal]
  - Clostridium difficile colitis [Fatal]
  - Pseudomonas infection [Fatal]
  - Candida infection [Fatal]
  - Renal impairment [Unknown]
  - Hepatitis C [Unknown]
  - Abdominal pain upper [Unknown]
  - Vomiting [Unknown]
